FAERS Safety Report 5071464-8 (Version None)
Quarter: 2006Q3

REPORT INFORMATION
  Report Type: 
  Country: None (occurrence: None)
  Receive Date: 20060804
  Receipt Date: 20060310
  Transmission Date: 20061208
  Serious: Yes (Other)
  Sender: FDA-Public Use
  Company Number: JP-JPN-A200600926

PATIENT
  Age: 1 Year
  Sex: Female
  Weight: 10 kg

DRUGS (5)
  1. CLAVAMOX [Suspect]
     Indication: OTITIS MEDIA
     Dosage: .6G TWICE PER DAY
     Route: 048
     Dates: start: 20060227, end: 20060302
  2. LL [Concomitant]
     Dosage: 3.6ML PER DAY
     Route: 048
     Dates: start: 20060227, end: 20060302
  3. MUCODYNE [Concomitant]
     Indication: RHINITIS
     Dosage: 3.6ML PER DAY
     Route: 048
     Dates: start: 20060227, end: 20060302
  4. CALONAL [Concomitant]
     Route: 048
  5. LYSOZYME CHLORIDE [Concomitant]
     Indication: RHINITIS
     Dosage: 3.6ML PER DAY
     Route: 048
     Dates: start: 20060227, end: 20060302

REACTIONS (5)
  - DIARRHOEA [None]
  - GASTROENTERITIS [None]
  - GASTROINTESTINAL HYPERMOTILITY [None]
  - NAUSEA [None]
  - VOMITING [None]
